FAERS Safety Report 9871487 (Version 1)
Quarter: 2014Q1

REPORT INFORMATION
  Report Type: Spontaneous
  Country: GB (occurrence: GB)
  Receive Date: 20140205
  Receipt Date: 20140205
  Transmission Date: 20141002
  Serious: Yes (Other)
  Sender: FDA-Public Use
  Company Number: PHHY2014GB011341

PATIENT
  Age: 43 Year
  Sex: Male
  Weight: 82 kg

DRUGS (8)
  1. PHENOXYMETHYLPENICILLIN [Suspect]
     Dates: start: 20140120
  2. PENICILLIN [Suspect]
     Dates: start: 20140120
  3. IBUPROFEN [Concomitant]
     Dates: start: 20131112, end: 20131118
  4. IBUPROFEN [Concomitant]
     Dosage: UNK
     Dates: start: 20131221, end: 20131227
  5. METHADONE [Concomitant]
     Dates: start: 20131121
  6. TRAMADOL [Concomitant]
     Dates: start: 20131212, end: 20140113
  7. MIRTAZAPINE [Concomitant]
     Dates: start: 20131111
  8. PROPRANOLOL [Concomitant]
     Dates: start: 20131111

REACTIONS (1)
  - Swelling [Unknown]
